FAERS Safety Report 8899913 (Version 1)
Quarter: 2012Q4

REPORT INFORMATION
  Report Type: 
  Country: US (occurrence: US)
  Receive Date: 20121108
  Receipt Date: 20121108
  Transmission Date: 20130627
  Serious: No
  Sender: FDA-Public Use
  Company Number: US-AMGEN-USASP2012031636

PATIENT
  Age: 69 Year
  Sex: Female
  Weight: 46.26 kg

DRUGS (2)
  1. ENBREL [Suspect]
     Indication: PRODUCT USED FOR UNKNOWN INDICATION
     Dosage: 50 mg, qwk
     Route: 058
  2. NORVASC [Concomitant]
     Dosage: 2.5 mg, UNK

REACTIONS (1)
  - Nasopharyngitis [Recovered/Resolved]
